FAERS Safety Report 23709827 (Version 1)
Quarter: 2024Q2

REPORT INFORMATION
  Report Type: Report from Study
  Country: GB (occurrence: GB)
  Receive Date: 20240405
  Receipt Date: 20240405
  Transmission Date: 20240715
  Serious: Yes (Death, Other)
  Sender: FDA-Public Use
  Company Number: GB-TAKEDA-2023TUS004440

PATIENT
  Age: 75 Year
  Sex: Male

DRUGS (1)
  1. HUMAN IMMUNOGLOBULIN G [Suspect]
     Active Substance: HUMAN IMMUNOGLOBULIN G
     Indication: Stem cell transplant
     Dosage: UNK
     Route: 058
     Dates: start: 202211, end: 202403

REACTIONS (13)
  - Death [Fatal]
  - Lower respiratory tract infection [Unknown]
  - Urinary tract infection [Unknown]
  - Body temperature increased [Unknown]
  - Muscular weakness [Unknown]
  - Abdominal distension [Unknown]
  - Lethargy [Unknown]
  - Malaise [Unknown]
  - Pyrexia [Unknown]
  - Abdominal pain lower [Unknown]
  - Infusion site erythema [Recovered/Resolved]
  - Infusion site swelling [Recovering/Resolving]
  - Fatigue [Unknown]

NARRATIVE: CASE EVENT DATE: 20230108
